FAERS Safety Report 5366583-2 (Version None)
Quarter: 2007Q2

REPORT INFORMATION
  Report Type: 
  Country: None (occurrence: None)
  Receive Date: 20070622
  Receipt Date: 20070611
  Transmission Date: 20071010
  Serious: Yes (Hospitalization)
  Sender: FDA-Public Use
  Company Number: GB-PFIZER INC-2007036819

PATIENT
  Age: 28 Year
  Sex: Male

DRUGS (1)
  1. PEGVISOMANT [Suspect]
     Indication: ACROMEGALY

REACTIONS (2)
  - BILIARY COLIC [None]
  - CHOLELITHIASIS [None]
